FAERS Safety Report 24186605 (Version 2)
Quarter: 2024Q3

REPORT INFORMATION
  Report Type: Spontaneous
  Country: BR (occurrence: BR)
  Receive Date: 20240808
  Receipt Date: 20240827
  Transmission Date: 20241017
  Serious: Yes (Other)
  Sender: SANDOZ
  Company Number: BR-002147023-NVSC2024BR065357

PATIENT
  Sex: Female

DRUGS (6)
  1. ANASTROZOLE [Suspect]
     Active Substance: ANASTROZOLE
     Indication: Product used for unknown indication
     Dosage: UNK
     Route: 065
  2. KISQALI [Suspect]
     Active Substance: RIBOCICLIB
     Dosage: 3 DF
     Route: 065
     Dates: start: 20240731
  3. KISQALI [Suspect]
     Active Substance: RIBOCICLIB
     Indication: Product used for unknown indication
     Dosage: 3 DF, QD
     Route: 065
     Dates: start: 20240302
  4. LETROZOLE [Suspect]
     Active Substance: LETROZOLE
     Indication: Product used for unknown indication
     Dosage: UNK
     Route: 065
  5. ALGINIC ACID [Concomitant]
     Active Substance: ALGINIC ACID
     Indication: Product used for unknown indication
     Dosage: UNK
     Route: 065
  6. TAMOXIFEN [Concomitant]
     Active Substance: TAMOXIFEN
     Indication: Product used for unknown indication
     Dosage: UNK
     Route: 065

REACTIONS (23)
  - Metastases to central nervous system [Unknown]
  - Metastases to liver [Unknown]
  - Metastases to bone [Unknown]
  - Metastases to lung [Unknown]
  - Necrosis [Unknown]
  - Decreased immune responsiveness [Unknown]
  - Dengue fever [Unknown]
  - Platelet count decreased [Unknown]
  - Mood swings [Unknown]
  - Head discomfort [Unknown]
  - Mobility decreased [Unknown]
  - Irritability [Unknown]
  - Crying [Unknown]
  - Gait disturbance [Unknown]
  - Movement disorder [Unknown]
  - Nervousness [Unknown]
  - Fatigue [Unknown]
  - Lung disorder [Unknown]
  - Pain [Unknown]
  - Tumour marker abnormal [Unknown]
  - Tumour marker abnormal [Recovered/Resolved]
  - Wound complication [Recovering/Resolving]
  - Wound [Recovering/Resolving]
